FAERS Safety Report 25401921 (Version 1)
Quarter: 2025Q2

REPORT INFORMATION
  Report Type: Spontaneous
  Country: US (occurrence: None)
  Receive Date: 20250604
  Receipt Date: 20250604
  Transmission Date: 20250716
  Serious: Yes (Hospitalization)
  Sender: FDA-CTU
  Company Number: None

PATIENT
  Sex: Female

DRUGS (3)
  1. HUMIRA [Suspect]
     Active Substance: ADALIMUMAB
     Indication: Rheumatoid arthritis
     Route: 058
     Dates: start: 20250114
  2. ICATIBANT ACETATE [Concomitant]
     Active Substance: ICATIBANT ACETATE
  3. EPINEPHRINE AUTO-INJ [Concomitant]

REACTIONS (2)
  - Weight decreased [None]
  - Swelling face [None]
